FAERS Safety Report 5124097-9 (Version None)
Quarter: 2006Q4

REPORT INFORMATION
  Report Type: 
  Country: None (occurrence: None)
  Receive Date: 20061010
  Receipt Date: 20051219
  Transmission Date: 20070319
  Serious: No
  Sender: FDA-Public Use
  Company Number: US-BRISTOL-MYERS SQUIBB COMPANY-13224035

PATIENT
  Age: 68 Year
  Sex: Female

DRUGS (3)
  1. AVAPRO [Suspect]
     Indication: HYPERTENSION
  2. PAMIDRONATE DISODIUM [Concomitant]
  3. CALCIUM GLUCONATE [Concomitant]

REACTIONS (1)
  - URTICARIA [None]
